FAERS Safety Report 12732488 (Version 1)
Quarter: 2016Q3

REPORT INFORMATION
  Report Type: Spontaneous
  Country: US (occurrence: US)
  Receive Date: 20160912
  Receipt Date: 20160912
  Transmission Date: 20161109
  Serious: Yes (Life-Threatening, Hospitalization)
  Sender: FDA-Public Use
  Company Number: None

PATIENT
  Age: 50 Year
  Sex: Female
  Weight: 117.48 kg

DRUGS (9)
  1. LYRICA [Concomitant]
     Active Substance: PREGABALIN
  2. VITAMIN D3 [Concomitant]
     Active Substance: CHOLECALCIFEROL
  3. SIMVASTATIN. [Concomitant]
     Active Substance: SIMVASTATIN
  4. MELOXICAM. [Suspect]
     Active Substance: MELOXICAM
     Indication: PAIN
     Route: 048
     Dates: end: 20160802
  5. ESOMEPRAZOLE MAGNE [Concomitant]
  6. METOPROLOL SUCCINA [Concomitant]
  7. METFORMIN HCL [Concomitant]
     Active Substance: METFORMIN HYDROCHLORIDE
  8. JARDIANCE [Concomitant]
     Active Substance: EMPAGLIFLOZIN
  9. QUINAPRIL HCTZ [Concomitant]

REACTIONS (4)
  - Dizziness [None]
  - Nausea [None]
  - Peripheral swelling [None]
  - Renal injury [None]

NARRATIVE: CASE EVENT DATE: 20160802
